FAERS Safety Report 6200768-8 (Version None)
Quarter: 2009Q2

REPORT INFORMATION
  Report Type: 
  Country: None (occurrence: None)
  Receive Date: 20090522
  Receipt Date: 20080805
  Transmission Date: 20091009
  Serious: No
  Sender: FDA-Public Use
  Company Number: US-ALEXION-A200800188

PATIENT
  Sex: Female

DRUGS (7)
  1. SOLIRIS [Suspect]
     Indication: PAROXYSMAL NOCTURNAL HAEMOGLOBINURIA
     Dosage: 600 MG, SINGLE
     Route: 042
     Dates: start: 20080804, end: 20080804
  2. SOLIRIS [Suspect]
     Dosage: 600 MG, SINGLE
     Route: 042
     Dates: start: 20080811, end: 20080811
  3. PREDNISONE [Concomitant]
     Dosage: 20 MG, QD
     Route: 048
  4. FOLIC ACID [Concomitant]
     Indication: SUPPLEMENTATION THERAPY
     Dosage: UNK, QD
     Route: 048
  5. ASPIRIN [Concomitant]
     Dosage: 325 MG, QD
     Route: 048
  6. IRON [Concomitant]
     Indication: SUPPLEMENTATION THERAPY
     Dosage: UNK, QD
     Route: 048
  7. EYE DROPS [Concomitant]
     Dosage: UNK, QD
     Route: 047
     Dates: start: 20080401

REACTIONS (6)
  - DIZZINESS [None]
  - FEELING ABNORMAL [None]
  - HAEMATOCRIT DECREASED [None]
  - HEADACHE [None]
  - HEART RATE INCREASED [None]
  - JOINT STIFFNESS [None]
